FAERS Safety Report 12204623 (Version 1)
Quarter: 2016Q1

REPORT INFORMATION
  Report Type: Spontaneous
  Country: FR (occurrence: FR)
  Receive Date: 20160323
  Receipt Date: 20160323
  Transmission Date: 20160526
  Serious: Yes (Other)
  Sender: FDA-Public Use
  Company Number: FR-SA-2016SA057939

PATIENT
  Age: 48 Year
  Sex: Male

DRUGS (3)
  1. TEMERIT [Concomitant]
     Active Substance: NEBIVOLOL
  2. APROVEL [Suspect]
     Active Substance: IRBESARTAN
     Indication: HYPERTENSION
     Route: 048
     Dates: start: 20160125, end: 20160222
  3. COAPROVEL [Suspect]
     Active Substance: HYDROCHLOROTHIAZIDE\IRBESARTAN
     Indication: HYPERTENSION
     Route: 048
     Dates: start: 20160125, end: 20160222

REACTIONS (1)
  - Hypersensitivity vasculitis [Recovering/Resolving]

NARRATIVE: CASE EVENT DATE: 20160201
